FAERS Safety Report 24266207 (Version 2)
Quarter: 2024Q3

REPORT INFORMATION
  Report Type: Spontaneous
  Country: US (occurrence: US)
  Receive Date: 20240830
  Receipt Date: 20240904
  Transmission Date: 20241017
  Serious: Yes (Congenital Anomaly, Other)
  Sender: Haleon PLC
  Company Number: US-HALEON-2193855

PATIENT
  Age: 1 Year
  Sex: Male
  Weight: 10.433 kg

DRUGS (8)
  1. IBUPROFEN [Suspect]
     Active Substance: IBUPROFEN
     Indication: Product used for unknown indication
     Dosage: 200-1800 MG, PRN
     Route: 064
  2. SUMATRIPTAN [Suspect]
     Active Substance: SUMATRIPTAN\SUMATRIPTAN SUCCINATE
     Indication: Product used for unknown indication
     Dosage: 50-200 MG, PRN
     Route: 064
  3. FIORICET [Suspect]
     Active Substance: ACETAMINOPHEN\BUTALBITAL\CAFFEINE
     Indication: Product used for unknown indication
     Dosage: PRN
     Route: 064
  4. BENADRYL [Suspect]
     Active Substance: DIPHENHYDRAMINE HYDROCHLORIDE
     Indication: Product used for unknown indication
     Dosage: 25-50 MG, PRN
     Route: 064
  5. TYLENOL [Suspect]
     Active Substance: ACETAMINOPHEN
     Dosage: 500-1500 MG, PRN
     Route: 064
  6. DEXAMETHASONE SODIUM PHOSPHATE [Suspect]
     Active Substance: DEXAMETHASONE PHOSPHATE\DEXAMETHASONE SODIUM PHOSPHATE
     Indication: Product used for unknown indication
     Dosage: 2-4 MG, PRN
     Route: 064
  7. LIDOCAINE HYDROCHLORIDE [Suspect]
     Active Substance: LIDOCAINE HYDROCHLORIDE
     Indication: Product used for unknown indication
     Dosage: 2-10 ML, PRN
     Route: 064
  8. ZOFRAN [Suspect]
     Active Substance: ONDANSETRON HYDROCHLORIDE
     Indication: Product used for unknown indication
     Route: 064

REACTIONS (2)
  - Hypertonia neonatal [Not Recovered/Not Resolved]
  - Foetal exposure during pregnancy [Unknown]

NARRATIVE: CASE EVENT DATE: 20240816
